FAERS Safety Report 5467586-X (Version None)
Quarter: 2007Q3

REPORT INFORMATION
  Report Type: 
  Country: None (occurrence: None)
  Receive Date: 20070925
  Receipt Date: 20070920
  Transmission Date: 20080115
  Serious: Yes (Life-Threatening, Other)
  Sender: FDA-Public Use
  Company Number: GB-ABBOTT-07P-167-0376445-00

PATIENT
  Sex: Female
  Weight: 72.8 kg

DRUGS (6)
  1. HUMIRA [Suspect]
     Indication: RHEUMATOID ARTHRITIS
     Route: 058
     Dates: start: 20060331, end: 20070728
  2. METHOTREXATE [Concomitant]
     Indication: DRUG USE FOR UNKNOWN INDICATION
     Route: 048
  3. SULFASALAZINE [Concomitant]
     Indication: DRUG USE FOR UNKNOWN INDICATION
     Route: 048
  4. DI-GESIC [Concomitant]
     Indication: ANALGESIA
     Route: 048
  5. NABUMETHONE [Concomitant]
     Indication: RHEUMATOID ARTHRITIS
     Route: 048
  6. ATENOLOL [Concomitant]
     Indication: HYPERTENSION
     Route: 048

REACTIONS (8)
  - APHASIA [None]
  - CYANOSIS [None]
  - PHARYNGEAL OEDEMA [None]
  - PRURITUS [None]
  - RASH GENERALISED [None]
  - SENSORY DISTURBANCE [None]
  - SKIN REACTION [None]
  - THROAT TIGHTNESS [None]
